FAERS Safety Report 6280477-X (Version None)
Quarter: 2009Q3

REPORT INFORMATION
  Report Type: 
  Country: None (occurrence: None)
  Receive Date: 20090724
  Receipt Date: 20080711
  Transmission Date: 20100115
  Serious: No
  Sender: FDA-Public Use
  Company Number: A0737509A

PATIENT
  Age: 60 Year
  Sex: Female

DRUGS (3)
  1. AVANDIA [Suspect]
     Indication: DRUG DISPENSING ERROR
     Dosage: 8MG PER DAY
     Route: 048
     Dates: start: 20080623, end: 20080709
  2. METOPROLOL SUCCINATE [Concomitant]
  3. NITROFURANTOIN [Concomitant]

REACTIONS (3)
  - ALOPECIA [None]
  - GINGIVAL RECESSION [None]
  - HAIR COLOUR CHANGES [None]
